FAERS Safety Report 18589707 (Version 1)
Quarter: 2020Q4

REPORT INFORMATION
  Report Type: Spontaneous
  Country: DE (occurrence: DE)
  Receive Date: 20201208
  Receipt Date: 20201208
  Transmission Date: 20210114
  Serious: Yes (Other)
  Sender: FDA-Public Use
  Company Number: NVSC2020DE318733

PATIENT
  Age: 83 Year
  Sex: Male

DRUGS (5)
  1. BEOVU [Suspect]
     Active Substance: BROLUCIZUMAB-DBLL
     Dosage: 6 MG/0.05 ML, UNKNOWN
     Route: 065
     Dates: start: 20200729
  2. BEOVU [Suspect]
     Active Substance: BROLUCIZUMAB-DBLL
     Dosage: 6 MG/0.05 ML, UNKNOWN
     Route: 065
     Dates: start: 20200603
  3. BEOVU [Suspect]
     Active Substance: BROLUCIZUMAB-DBLL
     Dosage: 6 MG/0.05 ML, UNKNOWN
     Route: 065
     Dates: start: 20200703
  4. BEOVU [Suspect]
     Active Substance: BROLUCIZUMAB-DBLL
     Indication: NEOVASCULAR AGE-RELATED MACULAR DEGENERATION
     Dosage: 6 MG/0.05 ML, UNKNOWN
     Route: 065
     Dates: start: 20200508
  5. BEOVU [Suspect]
     Active Substance: BROLUCIZUMAB-DBLL
     Dosage: UNK
     Route: 047
     Dates: end: 20200826

REACTIONS (2)
  - Visual acuity reduced [Recovered/Resolved]
  - Vitreous opacities [Recovered/Resolved]

NARRATIVE: CASE EVENT DATE: 20200923
